FAERS Safety Report 20983019 (Version 1)
Quarter: 2022Q2

REPORT INFORMATION
  Report Type: Report from Study
  Country: ES (occurrence: ES)
  Receive Date: 20220620
  Receipt Date: 20220620
  Transmission Date: 20220721
  Serious: Yes (Life-Threatening, Hospitalization)
  Sender: FDA-Public Use
  Company Number: ES-EXELIXIS-XL18421043285

PATIENT

DRUGS (24)
  1. CABOZANTINIB [Suspect]
     Active Substance: CABOZANTINIB
     Indication: Renal cell carcinoma
     Dosage: 60 MG, QD (THREE 20-MG TABLETS)
     Route: 048
     Dates: start: 20201202
  2. ATEZOLIZUMAB [Suspect]
     Active Substance: ATEZOLIZUMAB
     Indication: Renal cell carcinoma
     Dosage: 1200 MG, Q3WEEKS
     Route: 041
     Dates: start: 20201202
  3. OMEPRAZOLE [Concomitant]
     Active Substance: OMEPRAZOLE
     Indication: Gastrointestinal disorder prophylaxis
     Dosage: 20 MG, BID
     Route: 048
     Dates: start: 20200821
  4. FUROSEMIDE [Concomitant]
     Active Substance: FUROSEMIDE
     Indication: Oedema
     Dosage: 40 MG, BID
     Route: 048
     Dates: start: 20201202
  5. FUROSEMIDE [Concomitant]
     Active Substance: FUROSEMIDE
     Indication: Macular oedema
     Dosage: 60 MG, QD
     Route: 048
     Dates: start: 20210622, end: 20210802
  6. METAMIZOL [Concomitant]
     Active Substance: METAMIZOLE SODIUM
     Indication: Pain
     Dosage: 575 MG, TID
     Route: 048
     Dates: start: 20201215
  7. METAMIZOL [Concomitant]
     Active Substance: METAMIZOLE SODIUM
     Dosage: 2 G, 1 IN 1 AS REQUIRED
     Route: 042
     Dates: start: 20210730
  8. ACETAMINOPHEN [Concomitant]
     Active Substance: ACETAMINOPHEN
     Indication: Pain
     Dosage: 650 MG, TID
     Route: 048
     Dates: start: 20201215
  9. CLOBETASOL [Concomitant]
     Active Substance: CLOBETASOL
     Dosage: UNK UNK, QD
     Route: 062
     Dates: start: 20210617
  10. LORAZEPAM [Concomitant]
     Active Substance: LORAZEPAM
     Indication: Prophylaxis
     Dosage: 1 MG, QD
     Route: 048
     Dates: start: 20210730, end: 20210801
  11. LORAZEPAM [Concomitant]
     Active Substance: LORAZEPAM
     Dosage: 0.5 MG, 1 IN 1 AS REQUIRED
     Route: 048
     Dates: start: 20210731
  12. LORAZEPAM [Concomitant]
     Active Substance: LORAZEPAM
     Dosage: 25 MG, QD
     Route: 048
     Dates: start: 20200505, end: 20210730
  13. AMLODIPINE [Concomitant]
     Active Substance: AMLODIPINE BESYLATE
     Indication: Hypertension
     Dosage: UNK, UNK QD
     Route: 048
     Dates: start: 20210426, end: 20210801
  14. AMLODIPINE [Concomitant]
     Active Substance: AMLODIPINE BESYLATE
     Dosage: 10 MG, QD
     Route: 048
     Dates: start: 20210730, end: 20210731
  15. LEVETIRACETAM [Concomitant]
     Active Substance: LEVETIRACETAM
     Dosage: UNK
  16. LEVETIRACETAM [Concomitant]
     Active Substance: LEVETIRACETAM
     Dosage: 500 MG, BID
     Route: 048
     Dates: start: 20210730, end: 20210801
  17. LEVETIRACETAM [Concomitant]
     Active Substance: LEVETIRACETAM
     Dosage: 500 MG, BID
     Route: 048
     Dates: start: 20210801
  18. VALSARTAN [Concomitant]
     Active Substance: VALSARTAN
     Dosage: 80 MG, QD
     Route: 048
     Dates: start: 20210730, end: 20210801
  19. UNSPECIFIED INGREDIENT [Concomitant]
     Active Substance: UNSPECIFIED INGREDIENT
     Dosage: UNK, UNK TID (20000 UNIT NOT REPORTED,3 IN 1 D)
     Route: 048
     Dates: start: 20210730, end: 20210801
  20. METOCLOPRAMIDE [Concomitant]
     Active Substance: METOCLOPRAMIDE
     Dosage: 10 MG, 1 IN 1 AS REQUIRED
     Route: 048
     Dates: start: 20210730, end: 20210801
  21. PANCRELIPASE [Concomitant]
     Active Substance: PANCRELIPASE
     Indication: Pancreatic failure
     Dosage: 2000 MG, TID
     Route: 048
     Dates: start: 20210801
  22. METAMIZOLE [Concomitant]
     Active Substance: METAMIZOLE
     Dosage: 2 G, PRN
     Route: 042
     Dates: start: 20210730, end: 20210801
  23. MAGNESIUM [Concomitant]
     Active Substance: MAGNESIUM
     Indication: Hypomagnesaemia
     Dosage: UNK
     Route: 048
     Dates: start: 20210607
  24. SARS-CoV-2 vaccine [Concomitant]
     Dosage: UNK
     Dates: start: 20210415, end: 20210506

REACTIONS (1)
  - Hypomagnesaemia [Recovered/Resolved]

NARRATIVE: CASE EVENT DATE: 20210730
